FAERS Safety Report 4407669-6 (Version None)
Quarter: 2004Q3

REPORT INFORMATION
  Report Type: 
  Country: None (occurrence: None)
  Receive Date: 20040721
  Receipt Date: 20040713
  Transmission Date: 20050211
  Serious: Yes (Other)
  Sender: FDA-Public Use
  Company Number: CIP04001532

PATIENT
  Age: 64 Year
  Sex: Female

DRUGS (2)
  1. ACTONEL [Suspect]
     Indication: OSTEOPOROSIS
     Dosage: 35 MG ONCE WEEKLY, ORAL
     Route: 048
     Dates: end: 20040701
  2. OMEPRAZOL    ^ACYFABRIK^   (OMEPRAZOLE) [Concomitant]

REACTIONS (1)
  - URTICARIA GENERALISED [None]
